FAERS Safety Report 7622659-8 (Version None)
Quarter: 2011Q3

REPORT INFORMATION
  Report Type: 
  Country: None (occurrence: None)
  Receive Date: 20110719
  Receipt Date: 20110719
  Transmission Date: 20111222
  Serious: Yes (Other)
  Sender: FDA-Public Use
  Company Number: None

PATIENT
  Sex: Female

DRUGS (1)
  1. ZOLPIDEM [Suspect]
     Dosage: 12.5MG QHS ORALLY EVENING
     Route: 048
     Dates: start: 20110714

REACTIONS (7)
  - DRUG HYPERSENSITIVITY [None]
  - PARAESTHESIA [None]
  - HYPOAESTHESIA [None]
  - PRODUCT SUBSTITUTION ISSUE [None]
  - INSOMNIA [None]
  - URTICARIA [None]
  - EYE PRURITUS [None]
